FAERS Safety Report 22869309 (Version 4)
Quarter: 2024Q2

REPORT INFORMATION
  Report Type: Report from Study
  Country: BG (occurrence: BG)
  Receive Date: 20230826
  Receipt Date: 20240506
  Transmission Date: 20240716
  Serious: Yes (Other)
  Sender: FDA-Public Use
  Company Number: BG-CELLTRION INC.-2023BG015034

PATIENT

DRUGS (12)
  1. BEVACIZUMAB [Suspect]
     Active Substance: BEVACIZUMAB
     Indication: Non-small cell lung cancer metastatic
     Dosage: 1100 MILLIGRAM
     Route: 042
     Dates: start: 20201201
  2. CARBOPLATIN [Suspect]
     Active Substance: CARBOPLATIN
     Indication: Non-small cell lung cancer metastatic
     Dosage: 450 MILLIGRAM
     Route: 065
     Dates: start: 20201201
  3. ATEZOLIZUMAB [Suspect]
     Active Substance: ATEZOLIZUMAB
     Indication: Non-small cell lung cancer metastatic
     Dosage: 1200 MILLIGRAM
     Route: 042
     Dates: start: 20201201
  4. PACLITAXEL [Suspect]
     Active Substance: PACLITAXEL
     Indication: Non-small cell lung cancer metastatic
     Dosage: 360 MILLIGRAM
     Route: 065
     Dates: start: 20201201
  5. TORSEMIDE [Concomitant]
     Active Substance: TORSEMIDE
     Dosage: YES
     Dates: start: 2012
  6. FLAGYL [Concomitant]
     Active Substance: METRONIDAZOLE\METRONIDAZOLE HYDROCHLORIDE
     Dosage: YES
     Dates: start: 20210409
  7. EXFORGE [Concomitant]
     Active Substance: AMLODIPINE BESYLATE\VALSARTAN
     Dosage: YES
     Dates: start: 2012
  8. CALCIUM\CHOLECALCIFEROL [Concomitant]
     Active Substance: CALCIUM\CHOLECALCIFEROL
     Dosage: YES
  9. XGEVA [Concomitant]
     Active Substance: DENOSUMAB
     Indication: Metastases to bone
     Dosage: YES
     Dates: start: 20201203
  10. FEBUXOSTAT [Concomitant]
     Active Substance: FEBUXOSTAT
     Dosage: YES
     Dates: start: 2010
  11. LEVOTHYROXINE SODIUM [Concomitant]
     Active Substance: LEVOTHYROXINE SODIUM
     Dosage: YES
     Dates: start: 2009
  12. BISOPROLOL FUMARATE [Concomitant]
     Active Substance: BISOPROLOL FUMARATE
     Dosage: YES
     Dates: start: 2012

REACTIONS (2)
  - Osteonecrosis of jaw [Not Recovered/Not Resolved]
  - Overdose [Unknown]

NARRATIVE: CASE EVENT DATE: 20201201
